FAERS Safety Report 10256638 (Version 2)
Quarter: 2014Q2

REPORT INFORMATION
  Report Type: Spontaneous
  Country: CA (occurrence: CA)
  Receive Date: 20140624
  Receipt Date: 20140624
  Transmission Date: 20141212
  Serious: Yes (Hospitalization)
  Sender: FDA-Public Use
  Company Number: CA-GILEAD-2012-0064744

PATIENT
  Age: 75 Year
  Sex: Female
  Weight: 48.2 kg

DRUGS (14)
  1. AMBRISENTAN [Suspect]
     Indication: PULMONARY ARTERIAL HYPERTENSION
     Dosage: 10 MG, QD
     Route: 048
     Dates: start: 20120924, end: 20131213
  2. AMBRISENTAN [Suspect]
     Indication: CONNECTIVE TISSUE DISORDER
     Dosage: 5 MG, QD
     Route: 048
     Dates: start: 20131214
  3. ADALAT [Concomitant]
  4. PLAVIX [Concomitant]
     Indication: PRODUCT USED FOR UNKNOWN INDICATION
     Dosage: UNK
  5. LASIX                              /00032601/ [Concomitant]
  6. LIPITOR [Concomitant]
  7. SERAX                              /00040901/ [Concomitant]
  8. CALCIUM [Concomitant]
     Dosage: UNK
  9. VITAMIN D NOS [Concomitant]
     Route: 065
  10. ATACOR [Concomitant]
  11. SERC                               /00141802/ [Concomitant]
  12. AMLODIPINE [Concomitant]
  13. ALPRAZOLAM [Concomitant]
     Dosage: UNK
  14. ACETAMINOPHEN [Concomitant]

REACTIONS (7)
  - Fluid retention [Recovered/Resolved]
  - Dyspnoea [Recovered/Resolved]
  - Hypotension [Not Recovered/Not Resolved]
  - Alanine aminotransferase increased [Not Recovered/Not Resolved]
  - Aspartate aminotransferase increased [Not Recovered/Not Resolved]
  - Fall [Recovered/Resolved]
  - Inner ear disorder [Recovered/Resolved]
